FAERS Safety Report 17464112 (Version 1)
Quarter: 2020Q1

REPORT INFORMATION
  Report Type: Spontaneous
  Country: MY (occurrence: MY)
  Receive Date: 20200226
  Receipt Date: 20200226
  Transmission Date: 20200409
  Serious: Yes (Other)
  Sender: FDA-Public Use
  Company Number: MY-BAYER-2020-029067

PATIENT
  Age: 50 Year
  Sex: Female

DRUGS (1)
  1. CIPROBAY (CIPROFLOXACIN) [Suspect]
     Active Substance: CIPROFLOXACIN
     Dosage: UNK

REACTIONS (2)
  - Nervous system disorder [None]
  - Neuropathy peripheral [None]

NARRATIVE: CASE EVENT DATE: 20200216
